FAERS Safety Report 8291843-5 (Version None)
Quarter: 2012Q2

REPORT INFORMATION
  Report Type: 
  Country: None (occurrence: None)
  Receive Date: 20120417
  Receipt Date: 20120409
  Transmission Date: 20120825
  Serious: Yes (Hospitalization)
  Sender: FDA-Public Use
  Company Number: ES-ELI_LILLY_AND_COMPANY-ES201204002734

PATIENT
  Sex: Female
  Weight: 68 kg

DRUGS (11)
  1. LORMETAZEPAM [Concomitant]
     Indication: SLEEP DISORDER
     Dosage: 1 DF, QD
     Route: 048
  2. SINEMET [Concomitant]
     Indication: PARKINSON'S DISEASE
     Dosage: 1 DF, EVERY 8 HRS
     Route: 048
  3. CALCIUM CARBONATE [Concomitant]
     Indication: BONE DISORDER
     Dosage: 1 DF, QD
     Route: 048
  4. FORTEO [Suspect]
     Indication: OSTEOPOROSIS
     Dosage: 20 UG, QD
     Route: 058
     Dates: start: 20120301
  5. MIRTAZAPINE [Concomitant]
     Indication: SLEEP DISORDER
     Dosage: 1 DF, QD
     Route: 048
  6. TOLTERODINE TARTRATE [Concomitant]
     Indication: BLADDER DISORDER
     Dosage: 1 DF, QD
     Route: 048
  7. RASAGILINE [Concomitant]
     Indication: PARKINSON'S DISEASE
     Dosage: 1 DF, QD
     Route: 048
  8. CLOPIDOGREL [Concomitant]
     Indication: PERIPHERAL VASCULAR DISORDER
     Dosage: 1 DF, QD
     Route: 048
  9. PANTOPRAZOLE [Concomitant]
     Indication: ABDOMINAL DISCOMFORT
     Dosage: 20 MG, QD
     Route: 048
  10. ACETAMINOPHEN [Concomitant]
     Indication: PAIN
     Dosage: 1 DF, EVERY 8 HRS
     Route: 048
  11. TELMISARTAN [Concomitant]
     Indication: BLOOD PRESSURE ABNORMAL
     Dosage: 1 DF, QD
     Route: 048

REACTIONS (1)
  - COLITIS [None]
